FAERS Safety Report 7242661-8 (Version None)
Quarter: 2011Q1

REPORT INFORMATION
  Report Type: 
  Country: None (occurrence: None)
  Receive Date: 20110125
  Receipt Date: 20110118
  Transmission Date: 20110831
  Serious: Yes (Other)
  Sender: FDA-Public Use
  Company Number: US-PFIZER INC-2010069867

PATIENT
  Sex: Female
  Weight: 63.492 kg

DRUGS (12)
  1. LYRICA [Suspect]
     Dosage: 75 MG, 2X/DAY
     Dates: start: 20100101, end: 20101001
  2. LEXAPRO [Concomitant]
     Dosage: 20 MG, UNK
  3. NEURONTIN [Concomitant]
     Indication: AFFECTIVE DISORDER
     Dosage: UNK
  4. EFFEXOR XR [Concomitant]
     Indication: AFFECTIVE DISORDER
     Dosage: 75 MG, 1X/DAY
  5. SOMA [Concomitant]
     Indication: MUSCLE SPASMS
     Dosage: 350 MG, 3X/DAY
     Route: 048
  6. VITAMIN D [Concomitant]
     Dosage: UNK
  7. VITAMIN B NOS [Concomitant]
     Dosage: UNK
  8. ATIVAN [Concomitant]
     Indication: NERVOUS SYSTEM DISORDER
     Dosage: 1 MG, 2X/DAY
     Route: 048
  9. IRON [Concomitant]
  10. LYRICA [Suspect]
     Indication: FIBROMYALGIA
     Dosage: 50 MG, 2X/DAY
     Route: 048
     Dates: start: 20100301, end: 20100101
  11. OS-CAL [Concomitant]
     Indication: HYPOVITAMINOSIS
     Dosage: 1000 MG, DAILY
  12. AMBIEN [Concomitant]
     Indication: SLEEP DISORDER
     Dosage: 10 MG, 1X/DAY
     Route: 048

REACTIONS (6)
  - FIBROMYALGIA [None]
  - NAUSEA [None]
  - NERVOUS SYSTEM DISORDER [None]
  - WITHDRAWAL SYNDROME [None]
  - INSOMNIA [None]
  - SACROILIITIS [None]
